FAERS Safety Report 17404709 (Version 1)
Quarter: 2020Q1

REPORT INFORMATION
  Report Type: Spontaneous
  Country: US (occurrence: US)
  Receive Date: 20200211
  Receipt Date: 20200211
  Transmission Date: 20200409
  Serious: No
  Sender: FDA-Public Use
  Company Number: US-PURDUE-USA-2019-0148079

PATIENT
  Sex: Female

DRUGS (1)
  1. BUPRENORPHINE TRANSDERMAL PATCH (SIMILAR TO NDA 21-306) [Suspect]
     Active Substance: BUPRENORPHINE
     Indication: PAIN
     Dosage: 10 MG/HR, WEEKLY
     Route: 062
     Dates: start: 20190625, end: 20190625

REACTIONS (8)
  - Vomiting [Unknown]
  - Hypertension [Unknown]
  - Application site pruritus [Unknown]
  - Application site irritation [Unknown]
  - Nausea [Unknown]
  - Hypersensitivity [Unknown]
  - Urticaria [Unknown]
  - Application site erythema [Unknown]

NARRATIVE: CASE EVENT DATE: 20190625
